FAERS Safety Report 15714641 (Version 2)
Quarter: 2019Q1

REPORT INFORMATION
  Report Type: Spontaneous
  Country: US (occurrence: US)
  Receive Date: 20181212
  Receipt Date: 20190109
  Transmission Date: 20190417
  Serious: Yes (Hospitalization, Other)
  Sender: FDA-Public Use
  Company Number: US-JNJFOC-20181210118

PATIENT
  Age: 42 Year
  Sex: Male

DRUGS (1)
  1. INVOKANA [Suspect]
     Active Substance: CANAGLIFLOZIN
     Indication: TYPE 2 DIABETES MELLITUS
     Route: 048
     Dates: start: 20150219

REACTIONS (3)
  - Foot amputation [Unknown]
  - Osteomyelitis [Unknown]
  - Toe amputation [Unknown]

NARRATIVE: CASE EVENT DATE: 20150728
